FAERS Safety Report 17067623 (Version 1)
Quarter: 2019Q4

REPORT INFORMATION
  Report Type: Spontaneous
  Country: US (occurrence: US)
  Receive Date: 20191122
  Receipt Date: 20191122
  Transmission Date: 20200122
  Serious: No
  Sender: FDA-Public Use
  Company Number: US-BIODELIVERY SCIENCES INTERNATIONAL-2019BDSI0789

PATIENT
  Age: 46 Year
  Sex: Female
  Weight: 63.56 kg

DRUGS (2)
  1. BUPRENORPHINE. [Suspect]
     Active Substance: BUPRENORPHINE
     Indication: GASTROINTESTINAL PAIN
     Route: 002
     Dates: start: 20190920, end: 201909
  2. NO DRUG NAME [Concomitant]
     Active Substance: UNSPECIFIED INGREDIENT
     Indication: GASTROINTESTINAL PAIN
     Dosage: UNKNOWN; UNKNOWN
     Route: 065

REACTIONS (3)
  - Product adhesion issue [Unknown]
  - Wrong technique in product usage process [Recovered/Resolved]
  - Oral administration complication [Unknown]

NARRATIVE: CASE EVENT DATE: 201909
